FAERS Safety Report 15677183 (Version 4)
Quarter: 2019Q1

REPORT INFORMATION
  Report Type: Spontaneous
  Country: US (occurrence: US)
  Receive Date: 20181130
  Receipt Date: 20190225
  Transmission Date: 20190417
  Serious: No
  Sender: FDA-Public Use
  Company Number: US-PFIZER INC-2018490257

PATIENT
  Age: 72 Year
  Sex: Female
  Weight: 50.34 kg

DRUGS (3)
  1. ESTRING [Suspect]
     Active Substance: ESTRADIOL
     Indication: DYSPAREUNIA
  2. ESTRING [Suspect]
     Active Substance: ESTRADIOL
     Indication: VULVOVAGINAL DRYNESS
     Dosage: 1 MG, EVERY 3 MONTHS (INSERT 1 MG VAGINALLY Q 3 MTHS)
     Route: 067
     Dates: start: 20141030, end: 20181124
  3. ESTRING [Suspect]
     Active Substance: ESTRADIOL
     Indication: MENOPAUSAL SYMPTOMS

REACTIONS (5)
  - Vulvovaginal mycotic infection [Recovered/Resolved]
  - Vulvovaginal erythema [Unknown]
  - Dermatitis contact [Not Recovered/Not Resolved]
  - Vulvovaginal discomfort [Unknown]
  - Vulvovaginal pain [Unknown]

NARRATIVE: CASE EVENT DATE: 20181008
